FAERS Safety Report 21488516 (Version 4)
Quarter: 2022Q4

REPORT INFORMATION
  Report Type: Spontaneous
  Country: US (occurrence: US)
  Receive Date: 20221021
  Receipt Date: 20221213
  Transmission Date: 20230113
  Serious: No
  Sender: FDA-Public Use
  Company Number: US-SA-SAC20221017000071

PATIENT
  Age: 22 Year
  Sex: Female

DRUGS (2)
  1. CABLIVI [Suspect]
     Active Substance: CAPLACIZUMAB-YHDP
     Indication: Thrombotic microangiopathy
     Dosage: 11 MG, QD
     Route: 058
     Dates: start: 20220928
  2. CABLIVI [Suspect]
     Active Substance: CAPLACIZUMAB-YHDP
     Indication: Anaemia

REACTIONS (3)
  - Gingival bleeding [Unknown]
  - Product use in unapproved indication [Unknown]
  - Wrong technique in device usage process [Unknown]

NARRATIVE: CASE EVENT DATE: 20220928
